FAERS Safety Report 6263290-9 (Version None)
Quarter: 2009Q3

REPORT INFORMATION
  Report Type: 
  Country: None (occurrence: None)
  Receive Date: 20090710
  Receipt Date: 20090709
  Transmission Date: 20100115
  Serious: Yes (Hospitalization)
  Sender: FDA-Public Use
  Company Number: US-ROXANE LABORATORIES, INC.-2009-RO-00671RO

PATIENT
  Age: 67 Year
  Sex: Female

DRUGS (4)
  1. DEXAMETHASONE [Suspect]
     Indication: NAUSEA
     Dosage: 8 MG
     Dates: start: 20090630, end: 20090630
  2. LEVOXYL [Concomitant]
  3. MELOXICAM [Concomitant]
  4. ENBREL [Concomitant]

REACTIONS (5)
  - COMA [None]
  - CONVULSION [None]
  - LOSS OF CONSCIOUSNESS [None]
  - PYREXIA [None]
  - URINARY TRACT INFECTION [None]
